FAERS Safety Report 25172600 (Version 1)
Quarter: 2025Q2

REPORT INFORMATION
  Report Type: Report from Study
  Country: CN (occurrence: CN)
  Receive Date: 20250408
  Receipt Date: 20250408
  Transmission Date: 20250717
  Serious: Yes (Hospitalization)
  Sender: ACCORD
  Company Number: CN-HENLIUS-25CN019792

PATIENT
  Age: 69 Year
  Sex: Male
  Weight: 67.5 kg

DRUGS (3)
  1. TRASTUZUMAB [Suspect]
     Active Substance: TRASTUZUMAB
     Indication: Gastric cancer stage IV
     Dosage: STRENGTH: 150 MILLIGRAM?564.9 MILLIGRAM, Q3W
     Route: 042
     Dates: start: 20250306, end: 20250306
  2. OXALIPLATIN [Suspect]
     Active Substance: OXALIPLATIN
     Indication: Gastric cancer stage IV
     Dosage: 241 MILLIGRAM, Q3W
     Route: 042
     Dates: start: 20250306, end: 20250306
  3. CAPECITABINE [Suspect]
     Active Substance: CAPECITABINE
     Indication: Gastric cancer stage IV
     Dosage: 1800 MILLIGRAM, Q3W, BID, D1-D14
     Dates: start: 20250306

REACTIONS (1)
  - Ileus [Recovering/Resolving]

NARRATIVE: CASE EVENT DATE: 20250326
